FAERS Safety Report 9636474 (Version 1)
Quarter: 2013Q4

REPORT INFORMATION
  Report Type: Spontaneous
  Country: BR (occurrence: BR)
  Receive Date: 20131021
  Receipt Date: 20131021
  Transmission Date: 20140711
  Serious: Yes (Other)
  Sender: FDA-Public Use
  Company Number: BR-PFIZER INC-2013299825

PATIENT
  Sex: Female

DRUGS (2)
  1. XALATAN [Suspect]
     Indication: EYE PAIN
     Dosage: 3 UG (1 DROP EACH EYE), EVERY 3 MONTHS
     Route: 047
     Dates: start: 2010
  2. B COMPLEX [Concomitant]
     Indication: BONE DISORDER
     Dosage: UNK
     Dates: start: 2011

REACTIONS (2)
  - Bone atrophy [Unknown]
  - Off label use [Unknown]
